FAERS Safety Report 8679981 (Version 6)
Quarter: 2012Q4

REPORT INFORMATION
  Report Type: Report from Study
  Country: JP (occurrence: JP)
  Receive Date: 20120724
  Receipt Date: 20120927
  Transmission Date: 20130627
  Serious: Yes (Hospitalization)
  Sender: FDA-Public Use
  Company Number: JP-UCBSA-062117

PATIENT
  Age: 56 Year
  Sex: Female

DRUGS (16)
  1. CERTOLIZUMAB PEGOL [Suspect]
     Indication: RHEUMATOID ARTHRITIS
     Route: 058
     Dates: start: 20120223, end: 2012
  2. RHEUMATREX [Suspect]
     Indication: RHEUMATOID ARTHRITIS
     Route: 048
     Dates: start: 20120420, end: 20120708
  3. RHEUMATREX [Suspect]
     Indication: RHEUMATOID ARTHRITIS
     Route: 048
     Dates: start: 20120727
  4. CILOSTAZOL [Concomitant]
     Dates: start: 20110805, end: 20120706
  5. LIMAPROST [Concomitant]
     Dates: start: 20111013, end: 20120706
  6. EPERISONE HYDROCHLORIDE [Concomitant]
     Dates: start: 20111013, end: 20120706
  7. BENIDIPINE HYDROCHLORIDE [Concomitant]
     Dates: end: 20120706
  8. CANDESARTAN CILEXETIL [Concomitant]
     Dates: end: 20120706
  9. LOXOPROFEN SODIUM HYDRATE [Concomitant]
     Indication: RHEUMATOID ARTHRITIS
     Dates: start: 20120201
  10. LOXOPROFEN SODIUM HYDRATE [Concomitant]
     Indication: RHEUMATOID ARTHRITIS
     Dates: start: 20120110, end: 20120710
  11. LANSOPRAZOLE [Concomitant]
     Dates: start: 20120223
  12. FOLIC ACID [Concomitant]
     Dates: start: 20120227, end: 20120708
  13. ZOLPIDEM TARTRATE [Concomitant]
     Dates: start: 20120403
  14. REBAMIPIDE [Concomitant]
     Dates: start: 20120127, end: 20120710
  15. ISONIAZID [Concomitant]
     Dates: start: 20120201
  16. OCTOTIAMINE [Concomitant]
     Dosage: 3 TABS
     Dates: start: 20120201

REACTIONS (1)
  - Pneumocystis jiroveci pneumonia [Recovered/Resolved]
